FAERS Safety Report 8989035 (Version 1)
Quarter: 2012Q4

REPORT INFORMATION
  Report Type: Spontaneous
  Country: CN (occurrence: None)
  Receive Date: 20121218
  Receipt Date: 20121218
  Transmission Date: 20130627
  Serious: Yes (Other)
  Sender: FDA-Public Use
  Company Number: 2012/178

PATIENT
  Age: 8 Year
  Sex: Male

DRUGS (1)
  1. LEVETIRACETAM [Suspect]
     Indication: SEIZURE
     Dosage: 250 AND 500 MG/DAY

REACTIONS (2)
  - Juvenile myoclonic epilepsy [None]
  - Condition aggravated [None]
